FAERS Safety Report 24303964 (Version 1)
Quarter: 2024Q3

REPORT INFORMATION
  Report Type: Spontaneous
  Country: US (occurrence: None)
  Receive Date: 20240910
  Receipt Date: 20240910
  Transmission Date: 20241016
  Serious: Yes (Life-Threatening)
  Sender: Public
  Company Number: None

PATIENT
  Age: 38 Year
  Sex: Male
  Weight: 69 kg

DRUGS (3)
  1. BIKTARVY [Suspect]
     Active Substance: BICTEGRAVIR SODIUM\EMTRICITABINE\TENOFOVIR ALAFENAMIDE FUMARATE
     Indication: Acquired immunodeficiency syndrome
     Dosage: FREQUENCY : DAILY;?
     Route: 048
     Dates: start: 20240610, end: 20240729
  2. Biktarvy 30-120-15mg [Concomitant]
     Dates: start: 20240610, end: 20240729
  3. BIKTARVY [Concomitant]
     Active Substance: BICTEGRAVIR SODIUM\EMTRICITABINE\TENOFOVIR ALAFENAMIDE FUMARATE

REACTIONS (3)
  - Product name confusion [None]
  - Product administered to patient of inappropriate age [None]
  - Incorrect dose administered [None]

NARRATIVE: CASE EVENT DATE: 20240610
